FAERS Safety Report 21771981 (Version 1)
Quarter: 2022Q4

REPORT INFORMATION
  Report Type: Spontaneous
  Country: US (occurrence: None)
  Receive Date: 20221222
  Receipt Date: 20221222
  Transmission Date: 20230112
  Serious: Yes (Other)
  Sender: FDA-Public Use
  Company Number: None

PATIENT
  Age: 37 Year
  Sex: Female
  Weight: 84.6 kg

DRUGS (1)
  1. PREGABALIN [Suspect]
     Active Substance: PREGABALIN

REACTIONS (2)
  - Inadequate analgesia [None]
  - Dissociation [None]
